FAERS Safety Report 10219059 (Version 1)
Quarter: 2014Q2

REPORT INFORMATION
  Report Type: Spontaneous
  Country: US (occurrence: US)
  Receive Date: 20140605
  Receipt Date: 20140605
  Transmission Date: 20141212
  Serious: Yes (Other)
  Sender: FDA-Public Use
  Company Number: US-PFIZER INC-2014153762

PATIENT
  Age: 52 Year
  Sex: Male
  Weight: 117.91 kg

DRUGS (1)
  1. LYRICA [Suspect]
     Indication: NEURITIS
     Dosage: 75 MG, 2X/DAY
     Route: 048
     Dates: start: 201404, end: 201405

REACTIONS (1)
  - Cholelithiasis [Unknown]
